FAERS Safety Report 5296513-3 (Version None)
Quarter: 2007Q2

REPORT INFORMATION
  Report Type: 
  Country: None (occurrence: None)
  Receive Date: 20070413
  Receipt Date: 20070403
  Transmission Date: 20071010
  Serious: Yes (Other)
  Sender: FDA-Public Use
  Company Number: US-ROCHE-484674

PATIENT
  Age: 49 Year
  Sex: Female
  Weight: 75.8 kg

DRUGS (4)
  1. PEGASYS [Suspect]
     Dosage: 180 MCG Q WEEK.
     Route: 058
     Dates: start: 20061215
  2. COPEGUS [Suspect]
     Dosage: COURSE 1.
     Route: 048
     Dates: start: 20061215, end: 20070214
  3. COPEGUS [Suspect]
     Dosage: COURSE 2.
     Route: 048
     Dates: start: 20070227, end: 20070228
  4. COPEGUS [Suspect]
     Dosage: COURSE 3.
     Route: 048
     Dates: start: 20070326, end: 20070331

REACTIONS (1)
  - DRUG ERUPTION [None]
